FAERS Safety Report 4872460-3 (Version None)
Quarter: 2005Q4

REPORT INFORMATION
  Report Type: 
  Country: None (occurrence: None)
  Receive Date: 20051201
  Receipt Date: 20050804
  Transmission Date: 20060501
  Serious: No
  Sender: FDA-Public Use
  Company Number: 2005PV000822

PATIENT
  Age: 69 Year
  Sex: Male
  Weight: 95.2554 kg

DRUGS (6)
  1. BYETTA [Suspect]
     Indication: DIABETES MELLITUS NON-INSULIN-DEPENDENT
     Dosage: SEE IMAGE
     Route: 058
     Dates: start: 20050101, end: 20050728
  2. BYETTA [Suspect]
     Indication: DIABETES MELLITUS NON-INSULIN-DEPENDENT
     Dosage: SEE IMAGE
     Route: 058
     Dates: start: 20050729
  3. AMARYL [Concomitant]
  4. ACTOS [Concomitant]
  5. METFORMIN HCL [Concomitant]
  6. HEART MEDICATIONS [Concomitant]

REACTIONS (1)
  - BLOOD GLUCOSE INCREASED [None]
